FAERS Safety Report 16253448 (Version 1)
Quarter: 2019Q2

REPORT INFORMATION
  Report Type: Spontaneous
  Country: SE (occurrence: SE)
  Receive Date: 20190430
  Receipt Date: 20190430
  Transmission Date: 20190711
  Serious: Yes (Hospitalization)
  Sender: FDA-Public Use
  Company Number: SE-JNJFOC-20190433314

PATIENT
  Sex: Male

DRUGS (2)
  1. LOPERAMIDE [Suspect]
     Active Substance: LOPERAMIDE
     Indication: PRODUCT USED FOR UNKNOWN INDICATION
     Route: 048
     Dates: start: 20171221, end: 20171221
  2. LOPERAMIDE [Suspect]
     Active Substance: LOPERAMIDE
     Route: 048

REACTIONS (3)
  - Miosis [Unknown]
  - Abnormal behaviour [Unknown]
  - Overdose [Unknown]

NARRATIVE: CASE EVENT DATE: 20171221
